FAERS Safety Report 8984887 (Version 1)
Quarter: 2012Q4

REPORT INFORMATION
  Report Type: 
  Country: US (occurrence: US)
  Receive Date: 20121225
  Receipt Date: 20121225
  Transmission Date: 20130627
  Serious: No
  Sender: FDA-Public Use
  Company Number: US-009507513-1212USA009551

PATIENT
  Sex: Female

DRUGS (1)
  1. IMPLANON [Suspect]
     Indication: CONTRACEPTION
     Dosage: 1 rod for 3 years use
     Dates: start: 20100125

REACTIONS (5)
  - Musculoskeletal stiffness [Unknown]
  - Tremor [Unknown]
  - Muscle spasms [Unknown]
  - Mood swings [Unknown]
  - Anxiety [Unknown]
